FAERS Safety Report 9433962 (Version 2)
Quarter: 2013Q4

REPORT INFORMATION
  Report Type: Spontaneous
  Country: US (occurrence: US)
  Receive Date: 20130801
  Receipt Date: 20131016
  Transmission Date: 20140711
  Serious: Yes (Death, Hospitalization)
  Sender: FDA-Public Use
  Company Number: US-AMGEN-USASP2013052957

PATIENT
  Age: 95 Year
  Sex: Male
  Weight: 87.08 kg

DRUGS (3)
  1. PROLIA [Suspect]
     Indication: OSTEOPOROSIS
     Dosage: 60 MG, Q6MO
     Route: 058
     Dates: start: 20130712
  2. VITAMIN D                          /00107901/ [Concomitant]
  3. CALCIUM [Concomitant]

REACTIONS (11)
  - Chronic obstructive pulmonary disease [Fatal]
  - Asthenia [Fatal]
  - Confusional state [Unknown]
  - Disorientation [Unknown]
  - Blood calcium abnormal [Unknown]
  - Blood potassium abnormal [Unknown]
  - Blood creatinine abnormal [Unknown]
  - Blood magnesium abnormal [Unknown]
  - Hyponatraemia [Unknown]
  - Dysuria [Unknown]
  - Constipation [Unknown]
